FAERS Safety Report 17842569 (Version 1)
Quarter: 2020Q2

REPORT INFORMATION
  Report Type: Spontaneous
  Country: FR (occurrence: FR)
  Receive Date: 20200529
  Receipt Date: 20200529
  Transmission Date: 20200714
  Serious: Yes (Hospitalization)
  Sender: FDA-Public Use
  Company Number: NVSC2020FR139582

PATIENT
  Age: 66 Year
  Sex: Male
  Weight: 74 kg

DRUGS (7)
  1. PREDNISONE. [Suspect]
     Active Substance: PREDNISONE
     Dosage: 10 MG/KG, QD
     Route: 042
     Dates: start: 20191204, end: 20191204
  2. PREDNISONE. [Suspect]
     Active Substance: PREDNISONE
     Indication: PROSTATE CANCER METASTATIC
     Dosage: 10 MG, QD
     Route: 042
  3. KARDEGIC [Concomitant]
     Active Substance: ASPIRIN DL-LYSINE
     Indication: PRODUCT USED FOR UNKNOWN INDICATION
     Dosage: UNK
     Route: 065
  4. ZYTIGA [Concomitant]
     Active Substance: ABIRATERONE ACETATE
     Indication: PRODUCT USED FOR UNKNOWN INDICATION
     Dosage: UNK
     Route: 065
  5. CABAZITAXEL FOR INJECTION [Suspect]
     Active Substance: CABAZITAXEL
     Dosage: 32 MG, QOW
     Route: 042
     Dates: start: 20190718, end: 20190718
  6. BI-TILDIEM [Concomitant]
     Active Substance: DILTIAZEM
     Indication: HYPERTENSION
     Dosage: UNK
     Route: 065
  7. CABAZITAXEL FOR INJECTION [Suspect]
     Active Substance: CABAZITAXEL
     Indication: PROSTATE CANCER METASTATIC
     Dosage: 32 MG/KG, QOW
     Route: 042
     Dates: start: 20191204, end: 20191204

REACTIONS (1)
  - Anaemia [Not Recovered/Not Resolved]

NARRATIVE: CASE EVENT DATE: 20191228
